FAERS Safety Report 11075195 (Version 1)
Quarter: 2015Q2

REPORT INFORMATION
  Report Type: Spontaneous
  Country: FR (occurrence: FR)
  Receive Date: 20150429
  Receipt Date: 20150429
  Transmission Date: 20150821
  Serious: Yes (Hospitalization)
  Sender: FDA-Public Use
  Company Number: FR-SA-2015SA052898

PATIENT
  Age: 87 Year
  Sex: Male

DRUGS (11)
  1. ELISOR [Concomitant]
     Active Substance: PRAVASTATIN SODIUM
  2. TEMERIT [Concomitant]
     Active Substance: NEBIVOLOL
  3. FOLIC ACID. [Concomitant]
     Active Substance: FOLIC ACID
  4. RANITIDINE [Concomitant]
     Active Substance: RANITIDINE\RANITIDINE HYDROCHLORIDE
  5. ADENURIC [Suspect]
     Active Substance: FEBUXOSTAT
     Indication: GOUT
     Route: 048
     Dates: start: 201411, end: 20141219
  6. LASILIX [Suspect]
     Active Substance: FUROSEMIDE
     Route: 048
  7. COLCHIMAX [Suspect]
     Active Substance: COLCHICINE\DICYCLOMINE HYDROCHLORIDE
     Indication: GOUT
     Dosage: POWDER
     Route: 048
     Dates: start: 201412, end: 20141219
  8. FOZITEC [Suspect]
     Active Substance: FOSINOPRIL
     Route: 048
     Dates: end: 20141220
  9. PREVISCAN [Concomitant]
     Active Substance: FLUINDIONE
  10. AVODART [Concomitant]
     Active Substance: DUTASTERIDE
  11. MECIR [Concomitant]
     Active Substance: TAMSULOSIN HYDROCHLORIDE

REACTIONS (2)
  - Condition aggravated [Recovered/Resolved]
  - Acute kidney injury [Recovered/Resolved]

NARRATIVE: CASE EVENT DATE: 20141218
